FAERS Safety Report 17394123 (Version 1)
Quarter: 2020Q1

REPORT INFORMATION
  Report Type: Other
  Country: ES (occurrence: ES)
  Receive Date: 20200210
  Receipt Date: 20200210
  Transmission Date: 20200409
  Serious: Yes (Other)
  Sender: FDA-Public Use
  Company Number: ES-DEXPHARM-20200092

PATIENT
  Age: 78 Year
  Sex: Male

DRUGS (1)
  1. 2% CHLORHEXIDINE SOLUTION [Suspect]
     Active Substance: CHLORHEXIDINE
     Indication: INFECTION PROPHYLAXIS

REACTIONS (1)
  - Mediastinitis [Unknown]
